FAERS Safety Report 4964599-9 (Version None)
Quarter: 2006Q2

REPORT INFORMATION
  Report Type: 
  Country: None (occurrence: None)
  Receive Date: 20060406
  Receipt Date: 20051004
  Transmission Date: 20061013
  Serious: Yes (Hospitalization, Other)
  Sender: FDA-Public Use
  Company Number: US-MERCK-0510USA03558

PATIENT
  Sex: Female
  Weight: 132 kg

DRUGS (4)
  1. VIOXX [Suspect]
     Indication: ARTHRITIS
     Route: 048
     Dates: start: 20000112, end: 20040930
  2. VIOXX [Suspect]
     Route: 048
     Dates: start: 20000112, end: 20040930
  3. VIOXX [Suspect]
     Indication: OSTEOARTHRITIS
     Route: 048
     Dates: start: 20000112, end: 20040930
  4. VIOXX [Suspect]
     Route: 048
     Dates: start: 20000112, end: 20040930

REACTIONS (4)
  - CARDIAC DISORDER [None]
  - CORONARY ARTERY THROMBOSIS [None]
  - GASTROINTESTINAL DISORDER [None]
  - HERNIA [None]
